FAERS Safety Report 7814162-7 (Version None)
Quarter: 2011Q4

REPORT INFORMATION
  Report Type: 
  Country: None (occurrence: None)
  Receive Date: 20111014
  Receipt Date: 20111011
  Transmission Date: 20120403
  Serious: Yes (Disabling, Other)
  Sender: FDA-Public Use
  Company Number: US-JNJFOC-20101103083

PATIENT
  Sex: Female

DRUGS (5)
  1. MULTIVITAMIN [Concomitant]
     Route: 065
  2. DOXIL [Suspect]
     Indication: OVARIAN EPITHELIAL CANCER
     Dosage: EVERY 4-7 WEEKS FOR 7 YEARS, (CUMULATIVE DOSE 3000 MG/M2)
     Route: 042
     Dates: start: 20040101, end: 20100105
  3. ACTONEL [Concomitant]
     Route: 065
  4. CALCIUM CARBONATE [Concomitant]
     Route: 065
  5. COLACE [Concomitant]
     Route: 065

REACTIONS (1)
  - LIP AND/OR ORAL CAVITY CANCER [None]
